FAERS Safety Report 5512262-8 (Version None)
Quarter: 2007Q4

REPORT INFORMATION
  Report Type: 
  Country: None (occurrence: None)
  Receive Date: 20071112
  Receipt Date: 20070828
  Transmission Date: 20080405
  Serious: No
  Sender: FDA-Public Use
  Company Number: A0676985A

PATIENT
  Age: 34 Year
  Sex: Female

DRUGS (4)
  1. VERAMYST [Suspect]
     Indication: SINUS CONGESTION
     Route: 045
     Dates: start: 20070628, end: 20070701
  2. DIAMOX [Concomitant]
  3. LASIX [Concomitant]
  4. POTASSIUM CHLORIDE [Concomitant]

REACTIONS (1)
  - INTRAOCULAR PRESSURE INCREASED [None]
